FAERS Safety Report 20945104 (Version 2)
Quarter: 2023Q2

REPORT INFORMATION
  Report Type: Spontaneous
  Country: CA (occurrence: CA)
  Receive Date: 20220610
  Receipt Date: 20230612
  Transmission Date: 20230721
  Serious: No
  Sender: FDA-Public Use
  Company Number: CA-SAMSUNG BIOEPIS-SB-2022-13940

PATIENT
  Age: 23 Year
  Sex: Male
  Weight: 110 kg

DRUGS (5)
  1. INFLIXIMAB [Suspect]
     Active Substance: INFLIXIMAB
     Indication: Crohn^s disease
     Route: 042
  2. INFLIXIMAB [Suspect]
     Active Substance: INFLIXIMAB
     Route: 042
  3. METHOTREXATE [Concomitant]
     Active Substance: METHOTREXATE
     Indication: Product used for unknown indication
     Route: 048
  4. MESALAMINE [Concomitant]
     Active Substance: MESALAMINE
     Indication: Product used for unknown indication
     Dosage: UNKNOWN, TABLET (DELAYED AND EXTENDED RELEASE)
     Route: 065
  5. PREDNISONE [Concomitant]
     Active Substance: PREDNISONE
     Indication: Product used for unknown indication
     Dosage: UNKNOWN
     Route: 065

REACTIONS (5)
  - Condition aggravated [Not Recovered/Not Resolved]
  - Inflammation [Not Recovered/Not Resolved]
  - Drug ineffective [Not Recovered/Not Resolved]
  - Intentional product use issue [Not Recovered/Not Resolved]
  - Off label use [Not Recovered/Not Resolved]
